FAERS Safety Report 6333341-1 (Version None)
Quarter: 2009Q3

REPORT INFORMATION
  Report Type: 
  Country: None (occurrence: None)
  Receive Date: 20090828
  Receipt Date: 20090409
  Transmission Date: 20100115
  Serious: No
  Sender: FDA-Public Use
  Company Number: A0776194A

PATIENT
  Age: 61 Year
  Sex: Female

DRUGS (2)
  1. BECONASE [Suspect]
     Indication: DRUG USE FOR UNKNOWN INDICATION
     Dosage: 1SPR TWICE PER DAY
     Route: 045
     Dates: start: 20070101
  2. ASPIRIN [Concomitant]

REACTIONS (1)
  - PAROSMIA [None]
